FAERS Safety Report 18464851 (Version 1)
Quarter: 2020Q4

REPORT INFORMATION
  Report Type: Not Available
  Country: None (occurrence: None)
  Receive Date: 20201104
  Receipt Date: 20201104
  Transmission Date: 20210114
  Serious: No
  Sender: FDA-Public Use
  Company Number: US-AKORN-154473

PATIENT
  Age: 67 Year
  Sex: Male

DRUGS (1)
  1. TROPICAMIDE OPHTHALMIC SOL [Suspect]
     Active Substance: TROPICAMIDE

REACTIONS (1)
  - Therapeutic product effect delayed [Recovered/Resolved]
